FAERS Safety Report 7892650-5 (Version None)
Quarter: 2011Q4

REPORT INFORMATION
  Report Type: 
  Country: None (occurrence: None)
  Receive Date: 20111102
  Receipt Date: 20111021
  Transmission Date: 20120403
  Serious: Yes (Other)
  Sender: FDA-Public Use
  Company Number: CA-006674

PATIENT
  Sex: Male

DRUGS (2)
  1. FIRMAGON [Suspect]
     Indication: PROSTATE CANCER
     Dosage: (240 MG 1X SUBCUTANEOUS), (80 MG  1X/MONTH SUBCUTANEOUS )
     Route: 058
     Dates: start: 20110214, end: 20110214
  2. FIRMAGON [Suspect]
     Indication: PROSTATE CANCER
     Dosage: (240 MG 1X SUBCUTANEOUS), (80 MG  1X/MONTH SUBCUTANEOUS )
     Route: 058
     Dates: start: 20110311

REACTIONS (4)
  - FLUSHING [None]
  - INJECTION SITE DISCOLOURATION [None]
  - HYPOTENSION [None]
  - DIARRHOEA [None]
